FAERS Safety Report 6507038-9 (Version None)
Quarter: 2009Q4

REPORT INFORMATION
  Report Type: 
  Country: None (occurrence: None)
  Receive Date: 20091127
  Receipt Date: 20090423
  Transmission Date: 20100525
  Serious: Yes (Other)
  Sender: FDA-Public Use
  Company Number: US200904005358

PATIENT
  Sex: Female
  Weight: 129.7 kg

DRUGS (2)
  1. BYETTA [Suspect]
     Indication: TYPE 2 DIABETES MELLITUS
     Dosage: 10 UG, 2/D, SUBCUTANEOUS
     Route: 058
     Dates: start: 20000101, end: 20081205
  2. EXENATIDE 10MCG PEN, DISPOSABLE DEVICE (EXENATIDE PEN (10MCG))  PEN,DI [Concomitant]

REACTIONS (2)
  - ABDOMINAL DISCOMFORT [None]
  - PANCREATITIS [None]
